FAERS Safety Report 21648998 (Version 1)
Quarter: 2022Q4

REPORT INFORMATION
  Report Type: Spontaneous
  Country: US (occurrence: None)
  Receive Date: 20221123
  Receipt Date: 20221123
  Transmission Date: 20230112
  Serious: Yes (Other)
  Sender: FDA-Public Use
  Company Number: None

PATIENT
  Sex: Female

DRUGS (2)
  1. HUMIRA [Suspect]
     Active Substance: ADALIMUMAB
     Indication: Crohn^s disease
     Dosage: 40MG/0.4;ML SUBCUTANEOUS??INJECT 1 PEN (40 MG) UNDER THE SKIN (SUBCUTANEOUS INJECTION) EVERY 2 WEEKS
     Route: 058
     Dates: start: 20221102
  2. WAL-PHED TAB [Concomitant]

REACTIONS (5)
  - Crohn^s disease [None]
  - Musculoskeletal stiffness [None]
  - Fatigue [None]
  - Therapy interrupted [None]
  - Neoplasm malignant [None]
